FAERS Safety Report 7442858-8 (Version None)
Quarter: 2011Q2

REPORT INFORMATION
  Report Type: 
  Country: None (occurrence: None)
  Receive Date: 20110419
  Receipt Date: 20110406
  Transmission Date: 20111010
  Serious: Yes (Hospitalization, Other)
  Sender: FDA-Public Use
  Company Number: 2011P1005846

PATIENT
  Age: 18 Year
  Sex: Male
  Weight: 63.5036 kg

DRUGS (1)
  1. SOLODYN [Suspect]
     Indication: ACNE
     Dosage: 90 MG, QD, PO
     Route: 048
     Dates: start: 20090923, end: 20100220

REACTIONS (6)
  - SCHIZOPHRENIA [None]
  - EDUCATIONAL PROBLEM [None]
  - ABNORMAL BEHAVIOUR [None]
  - ALOPECIA [None]
  - PSYCHOTIC DISORDER [None]
  - BIPOLAR DISORDER [None]
